FAERS Safety Report 8280247-7 (Version None)
Quarter: 2012Q2

REPORT INFORMATION
  Report Type: 
  Country: None (occurrence: None)
  Receive Date: 20120412
  Receipt Date: 20110816
  Transmission Date: 20120825
  Serious: No
  Sender: FDA-Public Use
  Company Number: US-ASTRAZENECA-2011SE49356

PATIENT
  Sex: Female

DRUGS (1)
  1. NEXIUM [Suspect]
     Route: 048
     Dates: start: 20080101

REACTIONS (4)
  - FALL [None]
  - SPINAL DISORDER [None]
  - ABDOMINAL PAIN UPPER [None]
  - JOINT INJECTION [None]
